FAERS Safety Report 7026567-5 (Version None)
Quarter: 2010Q3

REPORT INFORMATION
  Report Type: 
  Country: None (occurrence: None)
  Receive Date: 20100930
  Receipt Date: 20100927
  Transmission Date: 20110219
  Serious: Yes (Other)
  Sender: FDA-Public Use
  Company Number: A0872924A

PATIENT
  Age: 54 Year
  Sex: Female

DRUGS (1)
  1. ASPIRIN + CAFFEINE + SALICYLAMIDE (FORMULATION UNKNOWN) (APIRIN+CAFFEI [Suspect]
     Dosage: SINGLE DOSE / ORAL
     Route: 048

REACTIONS (2)
  - EAR HAEMORRHAGE [None]
  - PAIN [None]
